FAERS Safety Report 4750201-8 (Version None)
Quarter: 2005Q3

REPORT INFORMATION
  Report Type: 
  Country: None (occurrence: None)
  Receive Date: 20050819
  Receipt Date: 20050811
  Transmission Date: 20060218
  Serious: Yes (Death, Hospitalization)
  Sender: FDA-Public Use
  Company Number: 2005BI009700

PATIENT
  Age: 70 Year
  Sex: Male
  Weight: 112.0385 kg

DRUGS (3)
  1. AMEVIVE [Suspect]
     Indication: PSORIASIS
     Dosage: 15 MG; QW; IM
     Route: 030
     Dates: start: 20030918, end: 20031215
  2. AMEVIVE [Suspect]
     Indication: PSORIASIS
     Dosage: 15 MG; QW; IM
     Route: 030
     Dates: start: 20040507, end: 20040831
  3. TRIAMCINOLONE [Concomitant]

REACTIONS (3)
  - FALL [None]
  - HEAD INJURY [None]
  - TRAUMATIC BRAIN INJURY [None]
